FAERS Safety Report 5368555-0 (Version None)
Quarter: 2007Q2

REPORT INFORMATION
  Report Type: 
  Country: None (occurrence: None)
  Receive Date: 20070619
  Receipt Date: 20070604
  Transmission Date: 20071010
  Serious: Yes (Hospitalization)
  Sender: FDA-Public Use
  Company Number: 100#08#2007-02017

PATIENT
  Age: 33 Year
  Sex: Female

DRUGS (1)
  1. METFORMIN HCL [Suspect]
     Indication: WEIGHT CONTROL
     Dosage: 850 MG

REACTIONS (4)
  - C-REACTIVE PROTEIN INCREASED [None]
  - LEUKOCYTOCLASTIC VASCULITIS [None]
  - RED BLOOD CELL SEDIMENTATION RATE INCREASED [None]
  - SELF-MEDICATION [None]
